FAERS Safety Report 4664951-5 (Version None)
Quarter: 2005Q2

REPORT INFORMATION
  Report Type: 
  Country: None (occurrence: None)
  Receive Date: 20050517
  Receipt Date: 20050428
  Transmission Date: 20051028
  Serious: Yes (Other)
  Sender: FDA-Public Use
  Company Number: DE_050415790

PATIENT
  Age: 9 Year
  Sex: Male

DRUGS (3)
  1. STRATTERA [Suspect]
     Indication: ATTENTION DEFICIT/HYPERACTIVITY DISORDER
     Dosage: 0.5 MG/KG/1 DAY
  2. CONCERTA [Concomitant]
  3. PAROXETIN (PAROXETINE HYDROCHLORIDE) [Concomitant]

REACTIONS (6)
  - FATIGUE [None]
  - HALLUCINATION [None]
  - INCOHERENT [None]
  - NAUSEA [None]
  - SYNCOPE [None]
  - UNRESPONSIVE TO VERBAL STIMULI [None]
